FAERS Safety Report 19878175 (Version 1)
Quarter: 2021Q3

REPORT INFORMATION
  Report Type: Spontaneous
  Country: FR (occurrence: FR)
  Receive Date: 20210924
  Receipt Date: 20210924
  Transmission Date: 20211014
  Serious: Yes (Hospitalization)
  Sender: FDA-Public Use
  Company Number: FR-GLAXOSMITHKLINE-FRCH2021065733

PATIENT
  Age: 94 Year
  Sex: Female
  Weight: 49 kg

DRUGS (5)
  1. SERESTA [Concomitant]
     Active Substance: OXAZEPAM
     Indication: DEPRESSION
     Route: 048
     Dates: start: 20210623
  2. LOSARTAN. [Suspect]
     Active Substance: LOSARTAN
     Indication: HYPERTENSION
     Dosage: 1 DF
     Route: 048
     Dates: start: 2021, end: 20210628
  3. LORATADINE. [Suspect]
     Active Substance: LORATADINE
     Indication: HYPERSENSITIVITY
     Dosage: 1 DF
     Route: 048
     Dates: start: 2021, end: 20210628
  4. LACRINORM [Concomitant]
     Active Substance: CARBOMER
     Indication: DRY EYE
     Dosage: 6 DF
     Route: 047
     Dates: start: 20210414, end: 20210706
  5. PAROXETINE HYDROCHLORIDE. [Suspect]
     Active Substance: PAROXETINE HYDROCHLORIDE
     Indication: DEPRESSION
     Dosage: 1 DF
     Route: 048
     Dates: start: 20210607, end: 20210628

REACTIONS (1)
  - Hyponatraemia [Recovered/Resolved]

NARRATIVE: CASE EVENT DATE: 20210628
